FAERS Safety Report 5141653-2 (Version None)
Quarter: 2006Q4

REPORT INFORMATION
  Report Type: 
  Country: None (occurrence: None)
  Receive Date: 20061026
  Receipt Date: 20061017
  Transmission Date: 20070319
  Serious: Yes (Hospitalization)
  Sender: FDA-Public Use
  Company Number: 230804

PATIENT
  Age: 41 Year
  Sex: Male

DRUGS (10)
  1. AVASTIN [Suspect]
     Indication: OESOPHAGEAL CARCINOMA
     Dosage: 7.5 MG/KG, Q3W
     Dates: start: 20060918, end: 20060925
  2. IRINOTECAN HCL [Suspect]
     Indication: OESOPHAGEAL CARCINOMA
     Dosage: 65 MG/M2
     Dates: start: 20060918, end: 20060925
  3. CISPLATIN [Suspect]
     Indication: OESOPHAGEAL CARCINOMA
     Dosage: 30 MG/M2
     Dates: start: 20060918, end: 20060925
  4. ADVAIR DISKUS 100/50 [Concomitant]
  5. ALBUTEROL (ALBUTEROL/ALBUTEROL SULFATE) [Concomitant]
  6. FAMCICLOVIR (FAMCICLOVIR) [Concomitant]
  7. IRON SUPPLEMENT (IRON NOS) [Concomitant]
  8. MULTI-VITAMINS [Concomitant]
  9. OMEPRAZOLE [Concomitant]
  10. UNKNOWN MEDICATION [Concomitant]

REACTIONS (3)
  - ABDOMINAL PAIN [None]
  - BLOOD GLUCOSE INCREASED [None]
  - FEBRILE NEUTROPENIA [None]
